FAERS Safety Report 14581726 (Version 3)
Quarter: 2018Q1

REPORT INFORMATION
  Report Type: Spontaneous
  Country: US (occurrence: US)
  Receive Date: 20180228
  Receipt Date: 20180327
  Transmission Date: 20180509
  Serious: No
  Sender: FDA-Public Use
  Company Number: US-TEVA-2018-US-862025

PATIENT
  Age: 70 Year
  Sex: Female

DRUGS (1)
  1. CLONAZEPAM. [Suspect]
     Active Substance: CLONAZEPAM
     Indication: BALANCE DISORDER
     Route: 065

REACTIONS (5)
  - Wrong technique in product usage process [Unknown]
  - Drug hypersensitivity [Unknown]
  - Anxiety [Unknown]
  - Product solubility abnormal [Unknown]
  - Malaise [Unknown]
